FAERS Safety Report 4516342-5 (Version None)
Quarter: 2004Q4

REPORT INFORMATION
  Report Type: 
  Country: None (occurrence: None)
  Receive Date: 20041202
  Receipt Date: 20040729
  Transmission Date: 20050328
  Serious: No
  Sender: FDA-Public Use
  Company Number: US-GLAXOSMITHKLINE-A0520324A

PATIENT
  Age: 17 Year
  Sex: Female

DRUGS (2)
  1. AUGMENTIN '125' [Suspect]
     Indication: ILL-DEFINED DISORDER
     Dosage: 875MG TWICE PER DAY
     Route: 048
     Dates: start: 20040728
  2. NO CONCURRENT MEDICATION [Concomitant]

REACTIONS (1)
  - VISUAL DISTURBANCE [None]
